FAERS Safety Report 14900468 (Version 1)
Quarter: 2018Q2

REPORT INFORMATION
  Report Type: Spontaneous
  Country: DE (occurrence: DE)
  Receive Date: 20180516
  Receipt Date: 20180516
  Transmission Date: 20180711
  Serious: Yes (Other)
  Sender: FDA-Public Use
  Company Number: DE-TEVA-2018-DE-890937

PATIENT
  Age: 72 Year
  Sex: Female

DRUGS (2)
  1. L-THYROXIN 75 HENNING PLUS [Concomitant]
     Dosage: SINCE SEVERAL YEARS
     Route: 048
  2. BISOPROLOL-RATIOPHARM 1.25 MG TABLETTEN [Suspect]
     Active Substance: BISOPROLOL FUMARATE
     Dosage: 1.25 MILLIGRAM DAILY;
     Route: 048
     Dates: start: 20180410, end: 20180420

REACTIONS (3)
  - Pain in extremity [None]
  - Tongue paralysis [Recovered/Resolved]
  - Myalgia [Recovered/Resolved]

NARRATIVE: CASE EVENT DATE: 201804
